FAERS Safety Report 4577511-1 (Version None)
Quarter: 2005Q1

REPORT INFORMATION
  Report Type: 
  Country: None (occurrence: None)
  Receive Date: 20050208
  Receipt Date: 20050126
  Transmission Date: 20050727
  Serious: Yes (Hospitalization)
  Sender: FDA-Public Use
  Company Number: 2005020325

PATIENT
  Age: 60 Year
  Sex: Female
  Weight: 92 kg

DRUGS (2)
  1. ARTHROTEC [Suspect]
     Indication: ARTHRALGIA
     Dosage: ORAL
     Route: 048
     Dates: end: 20021231
  2. ROFECOXIB [Suspect]
     Indication: ARTHRALGIA
     Dosage: ORAL
     Route: 048
     Dates: start: 20021215, end: 20030101

REACTIONS (1)
  - GLOMERULONEPHRITIS [None]
